FAERS Safety Report 14704514 (Version 1)
Quarter: 2018Q2

REPORT INFORMATION
  Report Type: Spontaneous
  Country: IT (occurrence: IT)
  Receive Date: 20180402
  Receipt Date: 20180402
  Transmission Date: 20180711
  Serious: Yes (Other)
  Sender: FDA-Public Use
  Company Number: IT-NOVAST LABORATORIES, LTD-IT-2018NOV000154

PATIENT
  Sex: Female

DRUGS (1)
  1. BUTALBITAL, ACETAMINOPHEN, AND CAFFEINE [Suspect]
     Active Substance: ACETAMINOPHEN\BUTALBITAL\CAFFEINE
     Indication: PRODUCT USED FOR UNKNOWN INDICATION
     Dosage: UNK
     Route: 064

REACTIONS (6)
  - Cardiomyopathy [Recovered/Resolved]
  - Ductus arteriosus premature closure [Recovering/Resolving]
  - Foetal exposure during delivery [Unknown]
  - Right ventricular dysfunction [Recovering/Resolving]
  - Pulmonary artery stenosis [Recovering/Resolving]
  - Cardiac murmur [Recovered/Resolved]
